FAERS Safety Report 12525411 (Version 2)
Quarter: 2016Q4

REPORT INFORMATION
  Report Type: Spontaneous
  Country: US (occurrence: US)
  Receive Date: 20160704
  Receipt Date: 20161013
  Transmission Date: 20170207
  Serious: No
  Sender: FDA-Public Use
  Company Number: US-009507513-1606USA014084

PATIENT
  Sex: Female
  Weight: 80.73 kg

DRUGS (4)
  1. NEXPLANON [Suspect]
     Active Substance: ETONOGESTREL
     Indication: CONTRACEPTION
     Dosage: UNK
     Route: 059
     Dates: start: 20151103, end: 20160524
  2. VITAMIN D [Concomitant]
     Active Substance: CHOLECALCIFEROL
  3. PROBIOTICS (UNSPECIFIED) [Concomitant]
     Active Substance: PROBIOTICS NOS
  4. OMEGA-3 MARINE TRIGLYCERIDES [Concomitant]
     Active Substance: FISH OIL

REACTIONS (10)
  - Implant site erythema [Unknown]
  - Implant site rash [Not Recovered/Not Resolved]
  - Implant site pruritus [Not Recovered/Not Resolved]
  - Acne [Unknown]
  - Vaginal haemorrhage [Unknown]
  - Implant site reaction [Recovered/Resolved]
  - Medication residue present [Unknown]
  - Implant site swelling [Unknown]
  - Implant site urticaria [Unknown]
  - Drug hypersensitivity [Not Recovered/Not Resolved]

NARRATIVE: CASE EVENT DATE: 2016
